FAERS Safety Report 4559477-3 (Version None)
Quarter: 2005Q1

REPORT INFORMATION
  Report Type: 
  Country: None (occurrence: None)
  Receive Date: 20050119
  Receipt Date: 20050107
  Transmission Date: 20050727
  Serious: Yes (Other)
  Sender: FDA-Public Use
  Company Number: 2005009346

PATIENT
  Age: 28 Year
  Sex: Male

DRUGS (1)
  1. CLINDAMYCIN PHOSPHATE [Suspect]
     Indication: TONSILLITIS
     Dosage: 600 MG, INTRAVENOUS
     Route: 042
     Dates: start: 20050105, end: 20050105

REACTIONS (1)
  - LOSS OF CONSCIOUSNESS [None]
